FAERS Safety Report 4490461-4 (Version None)
Quarter: 2004Q4

REPORT INFORMATION
  Report Type: 
  Country: None (occurrence: None)
  Receive Date: 20041102
  Receipt Date: 20030603
  Transmission Date: 20050328
  Serious: Yes (Death, Life-Threatening, Hospitalization)
  Sender: FDA-Public Use
  Company Number: PHBS2003JP05723

PATIENT
  Age: 46 Year
  Sex: Male

DRUGS (6)
  1. SIMULECT [Suspect]
     Indication: RENAL TRANSPLANT
     Dosage: 20 MG, ONCE/SINGLE
     Route: 042
     Dates: start: 20030318, end: 20030318
  2. SIMULECT [Suspect]
     Dosage: 20 MG, ONCE/SINGLE
     Route: 042
     Dates: start: 20030322, end: 20030322
  3. PROGRAF [Concomitant]
     Dosage: 2.5 - 8 MG PER DAY
     Dates: start: 20030318, end: 20030401
  4. CELLCEPT [Concomitant]
     Dosage: 1 G, QD
     Route: 048
     Dates: start: 20030326, end: 20030401
  5. METHYLPREDNISOLONE [Concomitant]
     Dosage: 500MG - 20MG PER DAY
     Dates: start: 20030318, end: 20030401
  6. PREDNISOLONE [Concomitant]
     Dosage: 40 MG/D
     Route: 042
     Dates: start: 20030318, end: 20030401

REACTIONS (44)
  - ABDOMINAL INFECTION [None]
  - ABDOMINAL OPERATION [None]
  - ABDOMINAL PAIN [None]
  - ANASTOMOTIC HAEMORRHAGE [None]
  - ANOREXIA [None]
  - ANURIA [None]
  - ARTIFICIAL ANUS [None]
  - BLOOD CREATININE INCREASED [None]
  - BOWEL SOUNDS ABNORMAL [None]
  - BRAIN ABSCESS [None]
  - BRAIN HERNIATION [None]
  - CANDIDIASIS [None]
  - CATHETER SITE HAEMORRHAGE [None]
  - COLECTOMY PARTIAL [None]
  - COLORECTOSTOMY [None]
  - COMA [None]
  - COMMUNICATION DISORDER [None]
  - CULTURE STOOL POSITIVE [None]
  - DISSEMINATED INTRAVASCULAR COAGULATION [None]
  - GASTROENTERITIS STAPHYLOCOCCAL [None]
  - GASTROINTESTINAL DISORDER [None]
  - GASTROINTESTINAL HAEMORRHAGE [None]
  - GRAFT LOSS [None]
  - HAEMODIALYSIS [None]
  - HAEMORRHAGE [None]
  - HAEMORRHAGIC CEREBRAL INFARCTION [None]
  - HYPOVOLAEMIA [None]
  - ILEAL PERFORATION [None]
  - ILEOSTOMY [None]
  - INTESTINAL HAEMORRHAGE [None]
  - INTESTINAL RESECTION [None]
  - INTESTINAL ULCER [None]
  - INTRA-ABDOMINAL HAEMORRHAGE [None]
  - LARGE INTESTINE PERFORATION [None]
  - PANCYTOPENIA [None]
  - PERITONITIS [None]
  - POST PROCEDURAL COMPLICATION [None]
  - POST PROCEDURAL HAEMORRHAGE [None]
  - PURULENT DISCHARGE [None]
  - PYREXIA [None]
  - SEPSIS [None]
  - STAPHYLOCOCCAL INFECTION [None]
  - THERAPY NON-RESPONDER [None]
  - X-RAY ABNORMAL [None]
